FAERS Safety Report 11005045 (Version 1)
Quarter: 2015Q2

REPORT INFORMATION
  Report Type: Spontaneous
  Country: FR (occurrence: FR)
  Receive Date: 20150409
  Receipt Date: 20150409
  Transmission Date: 20150821
  Serious: Yes (Hospitalization)
  Sender: FDA-Public Use
  Company Number: FR-SA-2015SA042752

PATIENT
  Age: 27 Year
  Sex: Female

DRUGS (6)
  1. OPTILOVA [Suspect]
     Active Substance: ETHINYL ESTRADIOL\LEVONORGESTREL
     Route: 048
     Dates: start: 201409, end: 20150303
  2. VENTOLINE [Suspect]
     Active Substance: ALBUTEROL
     Route: 055
     Dates: end: 20150303
  3. REBIF [Suspect]
     Active Substance: INTERFERON BETA-1A
     Dosage: 3 INJECTION/WEEK
     Route: 058
     Dates: start: 2008, end: 20150303
  4. ANTADYS [Suspect]
     Active Substance: FLURBIPROFEN
     Indication: MIGRAINE
     Route: 048
     Dates: end: 20150303
  5. NASACORT [Suspect]
     Active Substance: TRIAMCINOLONE ACETONIDE
     Route: 045
     Dates: end: 20150303
  6. AERIUS [Suspect]
     Active Substance: DESLORATADINE
     Route: 048
     Dates: end: 20150303

REACTIONS (1)
  - Thrombotic microangiopathy [Recovering/Resolving]
